FAERS Safety Report 20197814 (Version 4)
Quarter: 2022Q4

REPORT INFORMATION
  Report Type: Other
  Country: GB (occurrence: None)
  Receive Date: 20211217
  Receipt Date: 20221028
  Transmission Date: 20230112
  Serious: Yes (Other)
  Sender: FDA-Public Use
  Company Number: GB-ROCHE-2976071

PATIENT
  Age: 25 Year
  Sex: Female
  Weight: 31 kg

DRUGS (4)
  1. EVRYSDI [Suspect]
     Active Substance: RISDIPLAM
     Indication: Spinal muscular atrophy
     Route: 048
     Dates: start: 20210525
  2. EVRYSDI [Suspect]
     Active Substance: RISDIPLAM
     Route: 065
     Dates: start: 202105
  3. ERGOCALCIFEROL [Concomitant]
     Active Substance: ERGOCALCIFEROL
     Indication: Osteoporosis
     Dosage: ROUTE OF ADMINSTRATION: PERCUTANEOUS ENDOSCOPIC GASTROSTOMY(PEG)?START DATE : LONG TERM
     Route: 050
  4. CARBOCYSTEINE [Concomitant]
     Active Substance: CARBOCYSTEINE

REACTIONS (2)
  - Lower respiratory tract infection [Recovered/Resolved]
  - Product contamination microbial [Unknown]

NARRATIVE: CASE EVENT DATE: 20211116
